FAERS Safety Report 20025666 (Version 1)
Quarter: 2021Q4

REPORT INFORMATION
  Report Type: Other
  Country: JP (occurrence: JP)
  Receive Date: 20211102
  Receipt Date: 20211102
  Transmission Date: 20220304
  Serious: Yes (Other)
  Sender: FDA-Public Use
  Company Number: JP-CHUGAI-2021024004

PATIENT
  Age: 60 Year
  Sex: Female
  Weight: 66.9 kg

DRUGS (4)
  1. ATEZOLIZUMAB [Suspect]
     Active Substance: ATEZOLIZUMAB
     Indication: Lung adenocarcinoma
     Route: 041
     Dates: start: 20210317, end: 20210406
  2. CARBOPLATIN [Concomitant]
     Active Substance: CARBOPLATIN
     Indication: Lung adenocarcinoma
     Route: 041
     Dates: start: 20210317
  3. CARBOPLATIN [Concomitant]
     Active Substance: CARBOPLATIN
     Route: 041
     Dates: end: 20210406
  4. PEMETREXED DISODIUM [Concomitant]
     Active Substance: PEMETREXED DISODIUM
     Indication: Lung adenocarcinoma
     Route: 041
     Dates: start: 20210317, end: 20210406

REACTIONS (1)
  - Interstitial lung disease [Recovering/Resolving]

NARRATIVE: CASE EVENT DATE: 20210423
